FAERS Safety Report 18224064 (Version 1)
Quarter: 2020Q3

REPORT INFORMATION
  Report Type: Spontaneous
  Country: US (occurrence: US)
  Receive Date: 20200902
  Receipt Date: 20200902
  Transmission Date: 20201103
  Serious: Yes (Hospitalization, Disabling)
  Sender: FDA-Public Use
  Company Number: US-NOVOPROD-749998

PATIENT
  Age: 60 Year
  Sex: Male
  Weight: 105.23 kg

DRUGS (1)
  1. NOVOLIN R [Suspect]
     Active Substance: INSULIN HUMAN
     Indication: DIABETES MELLITUS
     Dosage: 75 IU, QD
     Route: 058
     Dates: start: 2000

REACTIONS (4)
  - Road traffic accident [Unknown]
  - Immunodeficiency [Not Recovered/Not Resolved]
  - Staphylococcal skin infection [Unknown]
  - Osteomyelitis [Unknown]

NARRATIVE: CASE EVENT DATE: 2005
